FAERS Safety Report 9915604 (Version 1)
Quarter: 2014Q1

REPORT INFORMATION
  Report Type: Spontaneous
  Country: DE (occurrence: DE)
  Receive Date: 20140221
  Receipt Date: 20140221
  Transmission Date: 20141002
  Serious: Yes (Hospitalization)
  Sender: FDA-Public Use
  Company Number: DE-AMGEN-DEUSP2014011867

PATIENT
  Age: 16 Year
  Sex: Female
  Weight: 66.9 kg

DRUGS (2)
  1. ENBREL [Suspect]
     Indication: PSORIASIS
     Dosage: UNK
     Route: 058
     Dates: start: 20140113
  2. FUMADERM [Concomitant]
     Dosage: UNK

REACTIONS (13)
  - Asthenia [Not Recovered/Not Resolved]
  - Pain [Unknown]
  - Nervous system disorder [Unknown]
  - Skin warm [Unknown]
  - Hyperhidrosis [Unknown]
  - Arthralgia [Unknown]
  - Polyarthritis [Unknown]
  - Dysstasia [Unknown]
  - Gait disturbance [Unknown]
  - Joint swelling [Unknown]
  - Hyperaemia [Unknown]
  - Limb discomfort [Unknown]
  - Groin pain [Unknown]
